FAERS Safety Report 4381166-9 (Version None)
Quarter: 2004Q2

REPORT INFORMATION
  Report Type: 
  Country: None (occurrence: None)
  Receive Date: 20040617
  Receipt Date: 20040617
  Transmission Date: 20050107
  Serious: Yes (Hospitalization)
  Sender: FDA-Public Use
  Company Number: None

PATIENT
  Age: 21 Year
  Sex: Female
  Weight: 81.6475 kg

DRUGS (5)
  1. RABEPRAZOLE SODIUM [Suspect]
     Indication: GASTROOESOPHAGEAL REFLUX DISEASE
     Dosage: 40 MG QD
     Dates: start: 20040301
  2. SIMVASTATIN [Concomitant]
  3. ROSIGLITAZONE [Concomitant]
  4. SERTRALINE HCL [Concomitant]
  5. ROFECOXIB [Concomitant]

REACTIONS (1)
  - DYSTONIA [None]
